FAERS Safety Report 12153957 (Version 1)
Quarter: 2016Q1

REPORT INFORMATION
  Report Type: Spontaneous
  Country: US (occurrence: None)
  Receive Date: 20160304
  Receipt Date: 20160304
  Transmission Date: 20160526
  Serious: Yes (Other)
  Sender: FDA-Public Use
  Company Number: None

PATIENT
  Age: 50 Year
  Sex: Male

DRUGS (1)
  1. XELODA [Suspect]
     Active Substance: CAPECITABINE
     Indication: COLON CANCER
     Route: 048
     Dates: start: 20151001

REACTIONS (4)
  - Neuropathy peripheral [None]
  - Fatigue [None]
  - Frequent bowel movements [None]
  - Weight increased [None]

NARRATIVE: CASE EVENT DATE: 20151001
